FAERS Safety Report 16099022 (Version 1)
Quarter: 2019Q1

REPORT INFORMATION
  Report Type: Spontaneous
  Country: US (occurrence: US)
  Receive Date: 20190218
  Receipt Date: 20190218
  Transmission Date: 20190418
  Serious: No
  Sender: FDA-Public Use
  Company Number: None

PATIENT
  Age: 65 Year

DRUGS (1)
  1. IBRANCE [Suspect]
     Active Substance: PALBOCICLIB
     Dosage: ?          OTHER
     Route: 048
     Dates: start: 20180305

REACTIONS (1)
  - Alopecia [None]

NARRATIVE: CASE EVENT DATE: 20190218
